FAERS Safety Report 7907766-4 (Version None)
Quarter: 2011Q4

REPORT INFORMATION
  Report Type: 
  Country: None (occurrence: None)
  Receive Date: 20111110
  Receipt Date: 20110829
  Transmission Date: 20120403
  Serious: No
  Sender: FDA-Public Use
  Company Number: US-B.I. PHARMACEUTICALS,INC./RIDGEFIELD-2011-BP-21194BP

PATIENT
  Age: 46 Year
  Sex: Female

DRUGS (1)
  1. TRADJENTA [Suspect]
     Indication: TYPE 2 DIABETES MELLITUS
     Dates: start: 20110606, end: 20110610

REACTIONS (5)
  - VISION BLURRED [None]
  - NAUSEA [None]
  - HEADACHE [None]
  - GLYCOSYLATED HAEMOGLOBIN DECREASED [None]
  - BLOOD GLUCOSE DECREASED [None]
